FAERS Safety Report 7536368-7 (Version None)
Quarter: 2011Q2

REPORT INFORMATION
  Report Type: 
  Country: None (occurrence: None)
  Receive Date: 20110609
  Receipt Date: 20110607
  Transmission Date: 20111010
  Serious: Yes (Death)
  Sender: FDA-Public Use
  Company Number: US-GENZYME-FABR-1001880

PATIENT

DRUGS (7)
  1. FABRAZYME [Suspect]
     Dosage: 1 MG/KG, UNK
     Route: 042
  2. ATIVAN [Concomitant]
     Indication: NAUSEA
  3. FABRAZYME [Suspect]
     Indication: FABRY'S DISEASE
     Dosage: 35 MG, UNK
     Route: 042
  4. OXYCODONE HCL [Concomitant]
     Indication: PAIN
     Route: 048
  5. COMBIVENT [Concomitant]
     Indication: DYSPNOEA
     Route: 055
  6. SPIRIVA [Concomitant]
     Indication: DYSPNOEA
     Dosage: 18 MCG, UNK
  7. ATIVAN [Concomitant]
     Indication: ANXIETY
     Dosage: 1 MG, UNK

REACTIONS (1)
  - RENAL FAILURE CHRONIC [None]
